FAERS Safety Report 13023619 (Version 3)
Quarter: 2018Q2

REPORT INFORMATION
  Report Type: Spontaneous
  Country: JP (occurrence: JP)
  Receive Date: 20161213
  Receipt Date: 20180625
  Transmission Date: 20180711
  Serious: Yes (Life-Threatening, Other)
  Sender: FDA-Public Use
  Company Number: JP-PFIZER INC-2016568224

PATIENT
  Age: 83 Year
  Sex: Male

DRUGS (1)
  1. INLYTA [Suspect]
     Active Substance: AXITINIB
     Indication: RENAL CANCER
     Dosage: 2 MG, 2X/DAY
     Route: 048
     Dates: start: 20160315, end: 20161205

REACTIONS (2)
  - Organising pneumonia [Recovering/Resolving]
  - Eosinophilic pneumonia chronic [Recovering/Resolving]

NARRATIVE: CASE EVENT DATE: 20161205
